FAERS Safety Report 21324230 (Version 3)
Quarter: 2025Q1

REPORT INFORMATION
  Report Type: Report from Study
  Country: KR (occurrence: KR)
  Receive Date: 20220912
  Receipt Date: 20250116
  Transmission Date: 20250409
  Serious: Yes (Other)
  Sender: GLAXOSMITHKLINE
  Company Number: KR-TAKEDA-2022TJP073052

PATIENT

DRUGS (24)
  1. NIRAPARIB [Suspect]
     Active Substance: NIRAPARIB
     Indication: Product used for unknown indication
     Dosage: 200 MILLIGRAM, QD
     Route: 065
     Dates: start: 20220531, end: 20220822
  2. NIRAPARIB [Suspect]
     Active Substance: NIRAPARIB
     Dosage: 100 MILLIGRAM, QD
     Route: 065
     Dates: start: 20220903
  3. MIRTAZAPINE [Concomitant]
     Active Substance: MIRTAZAPINE
     Indication: Sleep disorder
     Dosage: 7.5 MILLIGRAM, QD
     Route: 048
     Dates: start: 20220421
  4. RIVOTRIL [Concomitant]
     Active Substance: CLONAZEPAM
     Indication: Sleep disorder
     Dosage: 0.5 MILLIGRAM, QD
     Route: 048
     Dates: start: 20220324
  5. XANAX [Concomitant]
     Active Substance: ALPRAZOLAM
     Indication: Sleep disorder
     Dosage: 0.25 MILLIGRAM, QD
     Route: 048
     Dates: start: 20210803, end: 20211031
  6. TANTUM [Concomitant]
     Active Substance: BENZYDAMINE HYDROCHLORIDE
     Indication: Oesophageal candidiasis
     Dosage: 200 MILLILITER, TID
     Route: 048
     Dates: start: 20220610, end: 20220613
  7. TANTUM [Concomitant]
     Active Substance: BENZYDAMINE HYDROCHLORIDE
     Dosage: 300 MILLILITER, TID
     Route: 048
     Dates: start: 20220614, end: 20220701
  8. MAGMIL S [Concomitant]
     Indication: Constipation
     Dosage: 500 MILLIGRAM, TID
     Route: 048
     Dates: start: 20220609, end: 20220711
  9. DULACKHAN EASY [Concomitant]
     Indication: Constipation
     Dosage: 15 MILLILITER, QD
     Route: 048
     Dates: start: 20220621, end: 20220711
  10. METOCLOPRAMIDE HYDROCHLORIDE [Concomitant]
     Active Substance: METOCLOPRAMIDE HYDROCHLORIDE
     Indication: Prophylaxis
     Dosage: 5 MILLIGRAM, QD
     Route: 048
     Dates: start: 20220621, end: 20220703
  11. MEGACE F [Concomitant]
     Indication: Hypophagia
     Dosage: 5 MILLILITER, QD
     Route: 048
     Dates: start: 20220621, end: 20220627
  12. DICAMAX D PLUS [Concomitant]
     Indication: Osteopenia
     Dosage: UNK UNK, QD 1 TAB QD
     Route: 048
     Dates: start: 20220705
  13. HYDROXYCHLOROQUINE SULFATE [Concomitant]
     Active Substance: HYDROXYCHLOROQUINE SULFATE
     Indication: Osteopenia
     Dosage: 100 MILLIGRAM, QD
     Route: 048
     Dates: start: 20220705
  14. DEFLAZACORT [Concomitant]
     Active Substance: DEFLAZACORT
     Indication: Osteopenia
     Dosage: 9 MILLIGRAM, QD
     Route: 048
     Dates: start: 20220705
  15. LIVIAL [Concomitant]
     Active Substance: TIBOLONE
     Indication: Osteopenia
     Dosage: 2.5 MILLIGRAM, QD
     Route: 048
     Dates: start: 20220713, end: 20230625
  16. LIVIDI [Concomitant]
     Indication: Prophylaxis
     Dosage: UNK, TID (1 CAP, TID)
     Route: 048
     Dates: start: 20220803
  17. K CAB [Concomitant]
     Indication: Gastrooesophageal reflux disease
     Dosage: 50 MILLIGRAM, TID
     Route: 048
     Dates: start: 20220803, end: 20220901
  18. Almagel [Concomitant]
     Indication: Gastrooesophageal reflux disease
     Dosage: 15 MILLILITER, TID
     Route: 048
     Dates: start: 20230627, end: 20230711
  19. Citopcin [Concomitant]
     Indication: Vaginal infection
     Dosage: 500 MILLIGRAM, BID
     Route: 048
     Dates: start: 20221018, end: 20221022
  20. FERINJECT [Concomitant]
     Active Substance: FERRIC CARBOXYMALTOSE
     Indication: Anaemia
     Dosage: 1000 MILLIGRAM, QD
     Route: 042
     Dates: start: 20220901, end: 20220901
  21. GASTER [Concomitant]
     Active Substance: FAMOTIDINE
     Indication: Gastrooesophageal reflux disease
     Dosage: 20 MILLIGRAM, BID
     Route: 048
     Dates: start: 20230627, end: 20230711
  22. MOKTIN [Concomitant]
     Indication: COVID-19
     Dosage: 200 MILLIGRAM, TID
     Route: 048
     Dates: start: 20220825, end: 20220829
  23. NORZYME [Concomitant]
     Indication: Gastrooesophageal reflux disease
     Dosage: 457.7 MILLIGRAM, TID
     Route: 048
     Dates: start: 20220402, end: 20220502
  24. ACETAMINOPHEN [Concomitant]
     Active Substance: ACETAMINOPHEN
     Indication: COVID-19
     Dosage: 1300 MILLIGRAM, TID
     Route: 048
     Dates: start: 20220825, end: 20220827

REACTIONS (1)
  - Oesophageal candidiasis [Recovered/Resolved]

NARRATIVE: CASE EVENT DATE: 20220610
